FAERS Safety Report 9852026 (Version 1)
Quarter: 2014Q1

REPORT INFORMATION
  Report Type: Spontaneous
  Country: US (occurrence: US)
  Receive Date: 20140129
  Receipt Date: 20140129
  Transmission Date: 20141002
  Serious: No
  Sender: FDA-Public Use
  Company Number: US-PFIZER INC-2014023260

PATIENT
  Age: 64 Year
  Sex: Male

DRUGS (2)
  1. VIAGRA [Suspect]
     Dosage: 25 MG, UNK
  2. EDARBYCLOR [Suspect]
     Dosage: UNK

REACTIONS (3)
  - Hyperhidrosis [Unknown]
  - Hypotension [Unknown]
  - Presyncope [Unknown]
